FAERS Safety Report 21424982 (Version 1)
Quarter: 2022Q4

REPORT INFORMATION
  Report Type: Spontaneous
  Country: DE (occurrence: DE)
  Receive Date: 20221008
  Receipt Date: 20221008
  Transmission Date: 20230112
  Serious: Yes (Hospitalization, Other)
  Sender: FDA-Public Use
  Company Number: DE-ADRED-07876-02

PATIENT
  Age: 85 Year
  Sex: Female
  Weight: 55 kg

DRUGS (8)
  1. AMLODIPINE [Suspect]
     Active Substance: AMLODIPINE BESYLATE
     Indication: Product used for unknown indication
     Dosage: 10 MILLIGRAM, ONCE A DAY(10 MG, 0-0-1-0, TABLETTEN)
     Route: 048
  2. FENTANYL TRANSDERMAL SYSTEM [Suspect]
     Active Substance: FENTANYL
     Indication: Product used for unknown indication
     Dosage: 25 ?G/H, ALLE 3 TAGE, PFLASTER TRANSDERMAL
     Route: 062
  3. METAMIZOL [Concomitant]
     Active Substance: METAMIZOLE SODIUM
     Indication: Product used for unknown indication
     Dosage: 500 MILLIGRAM PER MILLILITRE(500 MG/ML, 30-30-30-30, TROPFEN)
     Route: 048
  4. TORSEMIDE [Suspect]
     Active Substance: TORSEMIDE
     Indication: Product used for unknown indication
     Dosage: 10 MILLIGRAM(10 MG, 0.5-0-0-0, TABLETTEN)
     Route: 048
  5. MELPERONE [Suspect]
     Active Substance: MELPERONE
     Indication: Product used for unknown indication
     Dosage: 25 MG/5ML, 2.5-0-5-5, SAFT(25MG/5ML, 2.5-0-5-5, JUICE)
     Route: 048
  6. PANTOPRAZOLE SODIUM [Concomitant]
     Active Substance: PANTOPRAZOLE SODIUM
     Indication: Product used for unknown indication
     Dosage: 20 MILLIGRAM, ONCE A DAY(20 MG, 0-0-1-0, TABLETTEN)
     Route: 048
  7. MIRTAZAPINE [Concomitant]
     Active Substance: MIRTAZAPINE
     Indication: Product used for unknown indication
     Dosage: 15 MILLIGRAM, ONCE A DAY(15 MG, 0-0-0-1, TABLETTEN)
     Route: 048
  8. DICLOFENAC [Concomitant]
     Active Substance: DICLOFENAC
     Indication: Product used for unknown indication
     Dosage: 10 MILLIGRAM PER GRAM, TWO TIMES A DAY(10 MG/G, 1-0-1-0, SALBE)
     Route: 061

REACTIONS (4)
  - Product monitoring error [Unknown]
  - Musculoskeletal pain [Unknown]
  - Labelled drug-drug interaction medication error [Unknown]
  - Delirium [Unknown]

NARRATIVE: CASE EVENT DATE: 20210610
